FAERS Safety Report 6649741-6 (Version None)
Quarter: 2010Q1

REPORT INFORMATION
  Report Type: 
  Country: None (occurrence: None)
  Receive Date: 20100324
  Receipt Date: 20100324
  Transmission Date: 20100710
  Serious: Yes (Hospitalization)
  Sender: FDA-Public Use
  Company Number: None

PATIENT
  Age: 25 Year
  Sex: Male
  Weight: 96.36 kg

DRUGS (2)
  1. NAPROXEN [Suspect]
     Indication: PAIN
     Dosage: UNKNOWN MG UNKNOWN PO
     Route: 048
     Dates: start: 20100307, end: 20100313
  2. IBUPROFEN [Suspect]
     Indication: PAIN
     Dosage: UNKNOWN MG UNKNOWN PO
     Route: 048
     Dates: start: 20080305, end: 20100313

REACTIONS (3)
  - GASTRIC HAEMORRHAGE [None]
  - GASTRITIS [None]
  - LIVER FUNCTION TEST ABNORMAL [None]
